FAERS Safety Report 21836160 (Version 2)
Quarter: 2023Q1

REPORT INFORMATION
  Report Type: Spontaneous
  Country: US (occurrence: US)
  Receive Date: 20230109
  Receipt Date: 20230210
  Transmission Date: 20230418
  Serious: No
  Sender: FDA-Public Use
  Company Number: US-BRISTOL-MYERS SQUIBB COMPANY-2023-002794

PATIENT
  Age: 62 Year
  Sex: Female

DRUGS (1)
  1. SOTYKTU [Suspect]
     Active Substance: DEUCRAVACITINIB
     Indication: Dermatomyositis
     Route: 048
     Dates: start: 20221105, end: 20221230

REACTIONS (4)
  - Acne [Recovered/Resolved]
  - Inflammation [Recovering/Resolving]
  - Erythema [Recovering/Resolving]
  - Off label use [Unknown]
